FAERS Safety Report 9186400 (Version 1)
Quarter: 2013Q1

REPORT INFORMATION
  Report Type: Report from Study
  Country: CA (occurrence: CA)
  Receive Date: 20130325
  Receipt Date: 20130325
  Transmission Date: 20140127
  Serious: Yes (Other)
  Sender: FDA-Public Use
  Company Number: CA-JNJFOC-20130307662

PATIENT
  Age: 22 Year
  Sex: Male
  Weight: 74.3 kg

DRUGS (1)
  1. REMICADE [Suspect]
     Indication: CROHN^S DISEASE
     Route: 042
     Dates: start: 200612

REACTIONS (3)
  - Joint dislocation [Unknown]
  - Fall [Unknown]
  - Joint dislocation [Unknown]
